FAERS Safety Report 26009087 (Version 1)
Quarter: 2025Q4

REPORT INFORMATION
  Report Type: Spontaneous
  Country: US (occurrence: US)
  Receive Date: 20251107
  Receipt Date: 20251107
  Transmission Date: 20260118
  Serious: No
  Sender: SANOFI AVENTIS
  Company Number: US-SA-2025SA324889

PATIENT
  Age: 84 Year
  Sex: Male
  Weight: 122.46 kg

DRUGS (21)
  1. DUPIXENT [Suspect]
     Active Substance: DUPILUMAB
     Dosage: 300 MG, QOW
     Route: 058
  2. SPIRONOLACTONE [Concomitant]
     Active Substance: SPIRONOLACTONE
  3. PANTOTHENIC ACID [Concomitant]
     Active Substance: PANTOTHENIC ACID
  4. MINERALS\VITAMINS [Concomitant]
     Active Substance: MINERALS\VITAMINS
  5. VITAMIN B12 [Concomitant]
     Active Substance: CYANOCOBALAMIN
  6. TRIMETHOPRIM [Concomitant]
     Active Substance: TRIMETHOPRIM
  7. VITAMIN C [Concomitant]
     Active Substance: ASCORBIC ACID
  8. XARELTO [Concomitant]
     Active Substance: RIVAROXABAN
  9. VENLAFAXINE HCL [Concomitant]
     Active Substance: VENLAFAXINE HYDROCHLORIDE
  10. TAMSULOSIN HYDROCHLORIDE [Concomitant]
     Active Substance: TAMSULOSIN HYDROCHLORIDE
  11. FISH OIL\OMEGA-3 FATTY ACIDS [Concomitant]
     Active Substance: FISH OIL\OMEGA-3 FATTY ACIDS
  12. NP THYROID [Concomitant]
     Active Substance: LEVOTHYROXINE\LIOTHYRONINE
  13. METOPROLOL SUCCINATE [Concomitant]
     Active Substance: METOPROLOL SUCCINATE
  14. METHENAMINE HIPPURATE [Concomitant]
     Active Substance: METHENAMINE HIPPURATE
  15. GABAPENTIN [Concomitant]
     Active Substance: GABAPENTIN
  16. FUROSEMIDE [Concomitant]
     Active Substance: FUROSEMIDE
  17. COENZYME Q10 [Concomitant]
     Active Substance: DIETARY SUPPLEMENT\UBIDECARENONE
  18. VITAMIN D3 [Concomitant]
     Active Substance: CHOLECALCIFEROL
  19. ATORVASTATIN CALCIUM [Concomitant]
     Active Substance: ATORVASTATIN CALCIUM
  20. ALPHA LIPOIC ACID [Concomitant]
     Active Substance: .ALPHA.-LIPOIC ACID
  21. Acetyl-l-carnitine HCL [Concomitant]

REACTIONS (2)
  - Rash pruritic [Unknown]
  - Urticaria [Unknown]

NARRATIVE: CASE EVENT DATE: 20251001
